FAERS Safety Report 16397869 (Version 1)
Quarter: 2019Q3

REPORT INFORMATION
  Report Type: Spontaneous
  Country: US (occurrence: US)
  Receive Date: 20190605
  Receipt Date: 20190605
  Transmission Date: 20191004
  Serious: No
  Sender: FDA-Public Use
  Company Number: None

PATIENT
  Age: 50 Year
  Sex: Female
  Weight: 80.55 kg

DRUGS (2)
  1. AIMOVIG [Suspect]
     Active Substance: ERENUMAB-AOOE
     Indication: MIGRAINE
     Dosage: ?          QUANTITY:1 INJECTION(S);OTHER FREQUENCY:EVERY 28 DAYS;OTHER ROUTE:SQ?
     Dates: start: 20181010, end: 20190425
  2. FISHOIL [Concomitant]

REACTIONS (6)
  - Abdominal pain upper [None]
  - Constipation [None]
  - Therapy change [None]
  - Alopecia [None]
  - Fatigue [None]
  - Drug ineffective [None]

NARRATIVE: CASE EVENT DATE: 20190401
